FAERS Safety Report 8967396 (Version 1)
Quarter: 2012Q4

REPORT INFORMATION
  Report Type: 
  Country: IT (occurrence: IT)
  Receive Date: 20121214
  Receipt Date: 20121214
  Transmission Date: 20130627
  Serious: Yes (Hospitalization)
  Sender: FDA-Public Use
  Company Number: IT-BAYER-2012-131482

PATIENT
  Age: 81 Year
  Sex: Male

DRUGS (1)
  1. CARDIOASPIRIN [Suspect]
     Indication: THROMBOEMBOLISM PROPHYLAXIS
     Dosage: 100 mg, QD
     Route: 048
     Dates: start: 20120101, end: 20120428

REACTIONS (7)
  - Rectal haemorrhage [Recovering/Resolving]
  - Melaena [Recovering/Resolving]
  - Hiatus hernia [Recovering/Resolving]
  - Oesophagitis [Recovering/Resolving]
  - Duodenal ulcer [Recovering/Resolving]
  - Erosive duodenitis [Recovering/Resolving]
  - Diabetes mellitus [Recovering/Resolving]
